FAERS Safety Report 8436306-9 (Version None)
Quarter: 2012Q2

REPORT INFORMATION
  Report Type: 
  Country: None (occurrence: None)
  Receive Date: 20120614
  Receipt Date: 20120601
  Transmission Date: 20120825
  Serious: Yes (Other)
  Sender: FDA-Public Use
  Company Number: US-ELI_LILLY_AND_COMPANY-US201206000818

PATIENT
  Sex: Male

DRUGS (2)
  1. CYMBALTA [Suspect]
  2. ANESTHETICS [Concomitant]

REACTIONS (1)
  - SURGERY [None]
